FAERS Safety Report 5677147-5 (Version None)
Quarter: 2008Q1

REPORT INFORMATION
  Report Type: 
  Country: None (occurrence: None)
  Receive Date: 20080324
  Receipt Date: 20080312
  Transmission Date: 20080703
  Serious: Yes (Hospitalization)
  Sender: FDA-Public Use
  Company Number: A0687728A

PATIENT
  Sex: Female
  Weight: 56.8 kg

DRUGS (4)
  1. LYMERIX [Suspect]
     Indication: PROPHYLAXIS
     Route: 065
     Dates: start: 19990601, end: 19990601
  2. AMOXICILLIN [Suspect]
     Indication: DRUG USE FOR UNKNOWN INDICATION
     Route: 065
  3. STEROID [Suspect]
     Indication: DRUG USE FOR UNKNOWN INDICATION
     Route: 065
  4. LYMERIX [Concomitant]
     Route: 065
     Dates: start: 19990501, end: 19990501

REACTIONS (57)
  - ACTIVITIES OF DAILY LIVING IMPAIRED [None]
  - AMNESIA [None]
  - APRAXIA [None]
  - ARTHRALGIA [None]
  - AUTOIMMUNE DISORDER [None]
  - AUTOIMMUNE HEPATITIS [None]
  - BACK PAIN [None]
  - BLEPHARITIS [None]
  - BRADYKINESIA [None]
  - CACHEXIA [None]
  - COGNITIVE DISORDER [None]
  - COMPRESSION FRACTURE [None]
  - DEMENTIA [None]
  - DEMENTIA ALZHEIMER'S TYPE [None]
  - DIZZINESS [None]
  - DYSKINESIA [None]
  - EYE IRRITATION [None]
  - EYELID PTOSIS [None]
  - FALL [None]
  - FATIGUE [None]
  - FEMORAL NECK FRACTURE [None]
  - HALLUCINATION [None]
  - HEADACHE [None]
  - HEPATIC CIRRHOSIS [None]
  - HEPATIC FIBROSIS [None]
  - HEPATIC NECROSIS [None]
  - HYPOACUSIS [None]
  - HYPOAESTHESIA [None]
  - INFLUENZA LIKE ILLNESS [None]
  - JOINT SWELLING [None]
  - KERATITIS [None]
  - LACRIMATION INCREASED [None]
  - LETHARGY [None]
  - LIVER FUNCTION TEST ABNORMAL [None]
  - LYME DISEASE [None]
  - MOTOR DYSFUNCTION [None]
  - MUSCULOSKELETAL PAIN [None]
  - MYALGIA [None]
  - NERVOUS SYSTEM DISORDER [None]
  - NOCTURIA [None]
  - OEDEMA PERIPHERAL [None]
  - OSTEOARTHRITIS [None]
  - OSTEOPOROSIS [None]
  - PAIN [None]
  - PARKINSON'S DISEASE [None]
  - PARKINSONISM [None]
  - PYREXIA [None]
  - RASH [None]
  - RAYNAUD'S PHENOMENON [None]
  - RESTLESS LEGS SYNDROME [None]
  - RIB FRACTURE [None]
  - SLEEP DISORDER [None]
  - SOMNOLENCE [None]
  - TENSION HEADACHE [None]
  - TREMOR [None]
  - VISION BLURRED [None]
  - VISUAL DISTURBANCE [None]
